FAERS Safety Report 9644157 (Version 1)
Quarter: 2013Q4

REPORT INFORMATION
  Report Type: Report from Study
  Country: US (occurrence: US)
  Receive Date: 20131024
  Receipt Date: 20131024
  Transmission Date: 20140711
  Serious: Yes (Other)
  Sender: FDA-Public Use
  Company Number: US-ROCHE-1291473

PATIENT
  Age: 86 Year
  Sex: Female

DRUGS (2)
  1. AVASTIN [Suspect]
     Indication: AGE-RELATED MACULAR DEGENERATION
     Route: 065
     Dates: start: 201011
  2. INSULIN [Concomitant]

REACTIONS (3)
  - Eye infection [Recovering/Resolving]
  - Visual acuity reduced [Unknown]
  - Blood pressure increased [Unknown]
